FAERS Safety Report 9448601 (Version 1)
Quarter: 2013Q3

REPORT INFORMATION
  Report Type: Report from Study
  Country: US (occurrence: US)
  Receive Date: 20130808
  Receipt Date: 20130808
  Transmission Date: 20140515
  Serious: Yes (Death)
  Sender: FDA-Public Use
  Company Number: US-ASTRAZENECA-2013SE60850

PATIENT
  Age: 98 Year
  Sex: Female
  Weight: 49.9 kg

DRUGS (5)
  1. NEXIUM [Suspect]
     Indication: GASTROOESOPHAGEAL REFLUX DISEASE
     Route: 048
  2. METOPROLOL [Suspect]
     Indication: BLOOD PRESSURE
     Route: 048
  3. NITRO PATCH [Concomitant]
     Indication: CARDIOVASCULAR EVENT PROPHYLAXIS
     Route: 061
  4. ENALAPRIL [Concomitant]
     Indication: BLOOD PRESSURE
     Route: 048
  5. SIMVASTATIN [Concomitant]
     Indication: BLOOD CHOLESTEROL ABNORMAL
     Route: 048

REACTIONS (2)
  - Death [Fatal]
  - Hypertension [Unknown]
